FAERS Safety Report 9503071 (Version 1)
Quarter: 2013Q3

REPORT INFORMATION
  Report Type: Spontaneous
  Country: US (occurrence: US)
  Receive Date: 20130906
  Receipt Date: 20130906
  Transmission Date: 20140515
  Serious: Yes (Hospitalization)
  Sender: FDA-Public Use
  Company Number: US-PFIZER INC-2013256964

PATIENT
  Age: 51 Year
  Sex: Female

DRUGS (1)
  1. RAPAMUNE [Suspect]
     Indication: COAGULOPATHY
     Dosage: 2 MG, UNK
     Dates: start: 20100618

REACTIONS (3)
  - Cerebrovascular accident [Unknown]
  - Convulsion [Unknown]
  - Off label use [Not Recovered/Not Resolved]
